FAERS Safety Report 9216201 (Version 4)
Quarter: 2013Q2

REPORT INFORMATION
  Report Type: Spontaneous
  Country: GB (occurrence: None)
  Receive Date: 20130404
  Receipt Date: 20130509
  Transmission Date: 20140414
  Serious: Yes (Other)
  Sender: FDA-Public Use
  Company Number: AUR-APL-2013-02688

PATIENT
  Sex: Male

DRUGS (1)
  1. RAMIPRIL [Suspect]
     Indication: HYPERTENSION

REACTIONS (11)
  - Renal pain [None]
  - Swelling face [None]
  - Chest discomfort [None]
  - Wheezing [None]
  - Cough [None]
  - Headache [None]
  - Pruritus [None]
  - Paraesthesia oral [None]
  - Dizziness [None]
  - Renal cancer [None]
  - Hypersensitivity [None]
